FAERS Safety Report 8473207-4 (Version None)
Quarter: 2012Q2

REPORT INFORMATION
  Report Type: 
  Country: None (occurrence: None)
  Receive Date: 20120627
  Receipt Date: 20120620
  Transmission Date: 20120825
  Serious: Yes (Other)
  Sender: FDA-Public Use
  Company Number: US-PFIZER INC-2012148286

PATIENT
  Sex: Female
  Weight: 125 kg

DRUGS (5)
  1. FENOFIBRATE [Concomitant]
     Indication: BLOOD CHOLESTEROL
     Dosage: 54 MG, 1X/DAY
  2. NOVOLOG [Concomitant]
     Indication: DIABETES MELLITUS
     Dosage: 8 UNITS, 3X/DAY
  3. LANTUS [Concomitant]
     Indication: DIABETES MELLITUS
     Dosage: 15 UNITS, 1X/DAY
  4. REVATIO [Suspect]
     Dosage: 10 MG, 3X/DAY
     Route: 048
  5. REVATIO [Suspect]
     Indication: PULMONARY HYPERTENSION
     Dosage: 20 MG, 3X/DAY
     Route: 048
     Dates: start: 20110801

REACTIONS (9)
  - LOWER LIMB FRACTURE [None]
  - PAIN [None]
  - UPPER LIMB FRACTURE [None]
  - BALANCE DISORDER [None]
  - BLOOD PRESSURE DECREASED [None]
  - SYNCOPE [None]
  - HIP FRACTURE [None]
  - FALL [None]
  - HAND FRACTURE [None]
